FAERS Safety Report 9064350 (Version 1)
Quarter: 2013Q1

REPORT INFORMATION
  Report Type: Spontaneous
  Country: US (occurrence: US)
  Receive Date: 20130128
  Receipt Date: 20130128
  Transmission Date: 20140127
  Serious: No
  Sender: FDA-Public Use
  Company Number: US-BAYER-2013-007217

PATIENT
  Age: 65 Year
  Sex: Male

DRUGS (2)
  1. LEVITRA [Suspect]
     Indication: ERECTILE DYSFUNCTION
     Dosage: 20 MG, TWO-THREE TIMES A WEEK
     Route: 048
     Dates: end: 20130112
  2. VITAMINS NOS [Concomitant]

REACTIONS (1)
  - Drug ineffective [Unknown]
